FAERS Safety Report 4956965-2 (Version None)
Quarter: 2006Q1

REPORT INFORMATION
  Report Type: 
  Country: None (occurrence: None)
  Receive Date: 20060127
  Receipt Date: 20041129
  Transmission Date: 20060701
  Serious: Yes (Hospitalization, Other)
  Sender: FDA-Public Use
  Company Number: 04-10-1414

PATIENT
  Age: 44 Year
  Sex: Male

DRUGS (7)
  1. CLOZAPINE [Suspect]
     Indication: MAJOR DEPRESSION
     Dosage: 200-450MG QD, ORAL
     Route: 048
     Dates: start: 20040309, end: 20041019
  2. CLOZAPINE [Suspect]
     Indication: POST-TRAUMATIC STRESS DISORDER
     Dosage: 200-450MG QD, ORAL
     Route: 048
     Dates: start: 20040309, end: 20041019
  3. DEPAKOTE [Concomitant]
  4. PAXIL [Concomitant]
  5. LEVAQUIN [Concomitant]
  6. SYNTHROID [Concomitant]
  7. PROTONIX [Concomitant]

REACTIONS (6)
  - BRONCHITIS [None]
  - DRUG LEVEL INCREASED [None]
  - LETHARGY [None]
  - LEUKOPENIA [None]
  - PNEUMONIA [None]
  - URINARY TRACT INFECTION [None]
